FAERS Safety Report 16973775 (Version 2)
Quarter: 2019Q4

REPORT INFORMATION
  Report Type: Spontaneous
  Country: US (occurrence: US)
  Receive Date: 20191030
  Receipt Date: 20191212
  Transmission Date: 20200122
  Serious: No
  Sender: FDA-Public Use
  Company Number: US-PFIZER INC-2019421851

PATIENT
  Age: 74 Year
  Sex: Male
  Weight: 119.5 kg

DRUGS (2)
  1. SUTENT [Suspect]
     Active Substance: SUNITINIB MALATE
     Dosage: 50 MG, CYCLIC (TAKE DAILY FOR 14 DAYS, REPEAT EVERY 21-DAYS/ TWO WEEKS ON, ONE WEEK OFF)
     Route: 048
     Dates: start: 20181106
  2. SUTENT [Suspect]
     Active Substance: SUNITINIB MALATE
     Indication: RENAL CANCER
     Dosage: 50 MG, CYCLIC (ONCE A DAY FOR 4 WEEKS ON AND 2 WEEKS OFF)
     Dates: start: 20180920, end: 2018

REACTIONS (3)
  - Condition aggravated [Unknown]
  - Product dispensing error [Recovered/Resolved]
  - Blood creatinine increased [Unknown]

NARRATIVE: CASE EVENT DATE: 20181015
